FAERS Safety Report 4298522-X (Version None)
Quarter: 2004Q1

REPORT INFORMATION
  Report Type: 
  Country: None (occurrence: None)
  Receive Date: 20040218
  Receipt Date: 20031030
  Transmission Date: 20041129
  Serious: Yes (Disabling)
  Sender: FDA-Public Use
  Company Number: WAES 0311GBR00011

PATIENT
  Age: 46 Year
  Sex: Female
  Weight: 95 kg

DRUGS (2)
  1. FOSAMAX [Suspect]
     Indication: OSTEOPOROSIS
     Route: 048
     Dates: start: 20020601, end: 20021101
  2. MEBEVERINE HYDROCHLORIDE [Concomitant]
     Indication: IRRITABLE BOWEL SYNDROME

REACTIONS (9)
  - ARTHRALGIA [None]
  - ASTHENIA [None]
  - CONSTIPATION [None]
  - DRUG INTERACTION [None]
  - FOOD INTERACTION [None]
  - HYPOAESTHESIA [None]
  - INSOMNIA [None]
  - MYALGIA [None]
  - PAIN IN EXTREMITY [None]
